FAERS Safety Report 4888330-0 (Version None)
Quarter: 2006Q1

REPORT INFORMATION
  Report Type: 
  Country: None (occurrence: None)
  Receive Date: 20060119
  Receipt Date: 20060113
  Transmission Date: 20060701
  Serious: Yes (Other)
  Sender: FDA-Public Use
  Company Number: US-2005-017031

PATIENT
  Age: 42 Year
  Sex: Male

DRUGS (1)
  1. BETASERON [Suspect]
     Indication: SECONDARY PROGRESSIVE MULTIPLE SCLEROSIS
     Dosage: 8 MIU, EVERY 2D, SUBCUTANEOUS
     Route: 058
     Dates: start: 20040220

REACTIONS (4)
  - INFLUENZA LIKE ILLNESS [None]
  - JAW DISORDER [None]
  - TOOTH DISORDER [None]
  - VISUAL DISTURBANCE [None]
